FAERS Safety Report 5531146-2 (Version None)
Quarter: 2007Q4

REPORT INFORMATION
  Report Type: 
  Country: None (occurrence: None)
  Receive Date: 20071130
  Receipt Date: 20071120
  Transmission Date: 20080405
  Serious: Yes (Hospitalization, Other)
  Sender: FDA-Public Use
  Company Number: AU-PFIZER INC-2007098696

PATIENT
  Sex: Male

DRUGS (1)
  1. CAVERJECT [Suspect]

REACTIONS (8)
  - ERYTHEMA [None]
  - GROIN PAIN [None]
  - INFECTION [None]
  - INFLAMMATION [None]
  - NEOPLASM [None]
  - PENILE PAIN [None]
  - PYREXIA [None]
  - SCROTAL PAIN [None]
